FAERS Safety Report 23794610 (Version 2)
Quarter: 2024Q2

REPORT INFORMATION
  Report Type: Spontaneous
  Country: US (occurrence: US)
  Receive Date: 20240429
  Receipt Date: 20240530
  Transmission Date: 20240716
  Serious: No
  Sender: FDA-Public Use
  Company Number: US-PFIZER INC-PV202400053355

PATIENT
  Age: 17 Year
  Sex: Male
  Weight: 65.288 kg

DRUGS (1)
  1. GENOTROPIN [Suspect]
     Active Substance: SOMATROPIN
     Indication: Growth hormone deficiency
     Dosage: 3.1 MG X6 DAYS [INJECT 3.0MG AND 3.2MG, ALTERNATING DAYS SUBCUTANEOUS NIGHTLY]^
     Route: 058
     Dates: start: 202201, end: 20231201

REACTIONS (3)
  - Acne [Recovering/Resolving]
  - Hair growth abnormal [Unknown]
  - Dysphonia [Unknown]
